FAERS Safety Report 7692155-0 (Version None)
Quarter: 2011Q3

REPORT INFORMATION
  Report Type: 
  Country: None (occurrence: None)
  Receive Date: 20110818
  Receipt Date: 20110804
  Transmission Date: 20111222
  Serious: Yes (Other)
  Sender: FDA-Public Use
  Company Number: PHHY2011DE61513

PATIENT
  Sex: Male

DRUGS (8)
  1. DIOVAN [Suspect]
     Dosage: 0.5 DF, QD
     Route: 048
  2. MARCUMAR [Concomitant]
     Dosage: 1 DF, TID
     Route: 048
     Dates: start: 20110714, end: 20110715
  3. EMBOLEX [Suspect]
     Indication: MYOCARDIAL BRIDGING
     Dosage: 1 DF, QD
     Route: 058
     Dates: start: 20110621, end: 20110711
  4. PROSTA URGENIN [Concomitant]
     Dosage: 1 DF, QD
     Route: 048
  5. MARCUMAR [Concomitant]
     Dosage: 1 DF, QD
     Route: 048
     Dates: start: 20110722
  6. METOPROLOL TARTRATE [Concomitant]
     Dosage: 0.5 DF, QD
     Route: 048
  7. ENOXAPARIN SODIUM [Concomitant]
     Route: 048
     Dates: start: 20110711, end: 20110722
  8. MARCUMAR [Concomitant]
     Dosage: 2 DF 5 TIMES PER DAY
     Route: 048
     Dates: start: 20110715, end: 20110719

REACTIONS (2)
  - INTERNATIONAL NORMALISED RATIO INCREASED [None]
  - WOUND HAEMORRHAGE [None]
